FAERS Safety Report 7701334-5 (Version None)
Quarter: 2011Q3

REPORT INFORMATION
  Report Type: 
  Country: None (occurrence: None)
  Receive Date: 20110822
  Receipt Date: 20110811
  Transmission Date: 20111222
  Serious: Yes (Death)
  Sender: FDA-Public Use
  Company Number: ZA-ELI_LILLY_AND_COMPANY-ZA201108005395

PATIENT
  Age: 77 Year
  Sex: Female

DRUGS (2)
  1. ALIMTA [Suspect]
     Dosage: 500 MG/M2, UNKNOWN
     Route: 065
  2. CARBOPLATIN [Concomitant]
     Dosage: UNK, UNKNOWN
     Route: 065

REACTIONS (1)
  - FEBRILE NEUTROPENIA [None]
